FAERS Safety Report 4359874-5 (Version None)
Quarter: 2004Q2

REPORT INFORMATION
  Report Type: 
  Country: None (occurrence: None)
  Receive Date: 20040513
  Receipt Date: 20040429
  Transmission Date: 20050107
  Serious: No
  Sender: FDA-Public Use
  Company Number: 2004GB01105

PATIENT
  Age: 69 Year
  Sex: Female

DRUGS (8)
  1. NOLVADEX [Suspect]
     Indication: BREAST CANCER
     Dosage: 20 MG QD PO
     Route: 048
     Dates: start: 19971113, end: 20021112
  2. DILTIAZEM [Concomitant]
  3. SIMVASTATIN [Concomitant]
  4. LISINOPRIL [Concomitant]
  5. ASPIRIN [Concomitant]
  6. GLUCOSAMINE [Concomitant]
  7. KOREAN GINSENG [Concomitant]
  8. CODYDRAMOL [Concomitant]

REACTIONS (2)
  - GLAUCOMA [None]
  - OSTEOPOROSIS [None]
